FAERS Safety Report 6486500-1 (Version None)
Quarter: 2009Q4

REPORT INFORMATION
  Report Type: 
  Country: None (occurrence: None)
  Receive Date: 20091210
  Receipt Date: 20091202
  Transmission Date: 20100525
  Serious: Yes (Hospitalization)
  Sender: FDA-Public Use
  Company Number: US-JNJFOC-20091201697

PATIENT
  Sex: Male
  Weight: 113.4 kg

DRUGS (3)
  1. DURAGESIC-100 [Suspect]
     Indication: SURGERY
     Route: 062
  2. AMLODIPINE [Concomitant]
     Indication: HYPERTENSION
  3. LISINOPRIL [Concomitant]
     Indication: HYPERTENSION
     Route: 048

REACTIONS (2)
  - DRUG DISPENSING ERROR [None]
  - ROAD TRAFFIC ACCIDENT [None]
